FAERS Safety Report 9344644 (Version 2)
Quarter: 2013Q3

REPORT INFORMATION
  Report Type: Spontaneous
  Country: BR (occurrence: BR)
  Receive Date: 20130612
  Receipt Date: 20130711
  Transmission Date: 20140515
  Serious: Yes (Other)
  Sender: FDA-Public Use
  Company Number: BR-ASTRAZENECA-2013SE41943

PATIENT
  Age: 31 Year
  Sex: Male
  Weight: 82 kg

DRUGS (4)
  1. VIMOVO [Suspect]
     Indication: ARTHRALGIA
     Dosage: 500 MG NAPROXEN + 20 MG ESOMEPRAZOLE MAGNESIUM
     Route: 048
     Dates: start: 20130606, end: 201306
  2. VIMOVO [Suspect]
     Indication: JOINT CREPITATION
     Dosage: 500 MG NAPROXEN + 20 MG ESOMEPRAZOLE MAGNESIUM
     Route: 048
     Dates: start: 20130606, end: 201306
  3. CIPROFLOXACIN [Concomitant]
     Indication: CHOLECYSTITIS INFECTIVE
     Dates: start: 201305, end: 2013
  4. UNSPECIFIED MEDICATION [Concomitant]
     Indication: MYALGIA

REACTIONS (4)
  - Chills [Recovered/Resolved]
  - Pain in extremity [Not Recovered/Not Resolved]
  - Nausea [Recovered/Resolved]
  - Headache [Recovered/Resolved]
